FAERS Safety Report 9414041 (Version 1)
Quarter: 2013Q3

REPORT INFORMATION
  Report Type: Spontaneous
  Country: JP (occurrence: JP)
  Receive Date: 20130723
  Receipt Date: 20130723
  Transmission Date: 20140515
  Serious: Yes (Other)
  Sender: FDA-Public Use
  Company Number: JP-PFIZER INC-2013214150

PATIENT
  Sex: Male

DRUGS (3)
  1. CORTRIL [Suspect]
     Dosage: 10 MG, 2X/DAY
  2. PARIET [Concomitant]
     Dosage: 10 MG, 1X/DAY
  3. CABERGOLINE [Concomitant]
     Dosage: 0.75 MG, WEEKLY, ON EVERY FRIDAY

REACTIONS (1)
  - Pituitary tumour benign [Unknown]
